FAERS Safety Report 8010777-4 (Version None)
Quarter: 2011Q4

REPORT INFORMATION
  Report Type: 
  Country: None (occurrence: None)
  Receive Date: 20111222
  Receipt Date: 20111214
  Transmission Date: 20120403
  Serious: Yes (Death)
  Sender: FDA-Public Use
  Company Number: ADR-2011-11443

PATIENT
  Age: 84 Year
  Sex: Female

DRUGS (4)
  1. DILAUDID [Concomitant]
  2. BUPIVACAINE HCL [Concomitant]
  3. BACLOFEN [Suspect]
     Indication: OSTEOPOROSIS
     Dosage: 45.95 MCG,DAILY,INTRATH
     Route: 037
  4. BACLOFEN [Suspect]
     Indication: PAIN
     Dosage: 45.95 MCG,DAILY,INTRATH
     Route: 037

REACTIONS (1)
  - DEATH [None]
